FAERS Safety Report 5734306-0 (Version None)
Quarter: 2008Q2

REPORT INFORMATION
  Report Type: 
  Country: None (occurrence: None)
  Receive Date: 20080512
  Receipt Date: 20080508
  Transmission Date: 20081010
  Serious: Yes (Hospitalization)
  Sender: FDA-Public Use
  Company Number: US-BRISTOL-MYERS SQUIBB COMPANY-14183008

PATIENT
  Age: 65 Year
  Sex: Male

DRUGS (17)
  1. CETUXIMAB [Suspect]
     Indication: NON-SMALL CELL LUNG CANCER
     Dosage: INITITED ON 26-FEB-2008 WITH 400MG/M2
     Route: 042
     Dates: start: 20080304
  2. RADIATION THERAPY [Suspect]
     Indication: NON-SMALL CELL LUNG CANCER
     Dosage: 1 DOSAGE FORM = 73.5 GY IN 35 FRACTIONS OVER 7 WEEKS
     Dates: start: 20080304
  3. RANEXA [Concomitant]
  4. OMEPRAZOLE [Concomitant]
  5. ROBITUSSIN [Concomitant]
  6. MAGNESIUM OXIDE [Concomitant]
  7. PROCHLORPERAZINE [Concomitant]
  8. LEXAPRO [Concomitant]
  9. VYTORIN [Concomitant]
     Dosage: 1 DOSAGE FORM=10/35
  10. PLAVIX [Concomitant]
  11. NADOLOL [Concomitant]
  12. EXFORGE [Concomitant]
     Dosage: 1 DOSAGE FORM=5/320(UNITS NOT SPEC)
     Route: 048
  13. ASPIRIN [Concomitant]
  14. RESTORIL [Concomitant]
  15. FLOMAX [Concomitant]
  16. FENTANYL TRANSDERMAL SYSTEM [Concomitant]
     Route: 062
  17. OXYCODONE HCL [Concomitant]

REACTIONS (2)
  - BURSITIS [None]
  - CELLULITIS [None]
